FAERS Safety Report 22206868 (Version 3)
Quarter: 2023Q2

REPORT INFORMATION
  Report Type: Spontaneous
  Country: BR (occurrence: BR)
  Receive Date: 20230413
  Receipt Date: 20230519
  Transmission Date: 20230721
  Serious: No
  Sender: FDA-Public Use
  Company Number: BR-PFIZER INC-202300144407

PATIENT

DRUGS (1)
  1. CAVERJECT IMPULSE [Suspect]
     Active Substance: ALPROSTADIL
     Dosage: 2 TO 3 TIMES A WEEK

REACTIONS (2)
  - Device breakage [Unknown]
  - Device leakage [Unknown]
